FAERS Safety Report 20510550 (Version 1)
Quarter: 2022Q1

REPORT INFORMATION
  Report Type: Other
  Country: DE (occurrence: None)
  Receive Date: 20220224
  Receipt Date: 20220224
  Transmission Date: 20220423
  Serious: Yes (Other)
  Sender: FDA-Public Use
  Company Number: DE-ROCHE-2573131

PATIENT
  Age: 19 Year
  Sex: Female
  Weight: 70 kg

DRUGS (6)
  1. OCREVUS [Suspect]
     Active Substance: OCRELIZUMAB
     Indication: Relapsing-remitting multiple sclerosis
     Route: 042
     Dates: start: 20180901
  2. OCREVUS [Suspect]
     Active Substance: OCRELIZUMAB
     Route: 042
     Dates: start: 20200603
  3. OCREVUS [Suspect]
     Active Substance: OCRELIZUMAB
     Dosage: 322 DAYS
     Route: 042
     Dates: start: 20210421
  4. PFIZER-BIONTECH COVID-19 VACCINE [Suspect]
     Active Substance: TOZINAMERAN
     Indication: Product used for unknown indication
     Dosage: SECOND VACCINATION (26/MAR/2021)
     Route: 065
     Dates: start: 20210306
  5. MAGNESIUM [Concomitant]
     Active Substance: MAGNESIUM
  6. ACETAMINOPHEN [Concomitant]
     Active Substance: ACETAMINOPHEN

REACTIONS (22)
  - Urinary retention [Recovered/Resolved]
  - Dizziness [Recovering/Resolving]
  - Gastroenteritis [Recovered/Resolved]
  - Cystitis [Recovered/Resolved]
  - Joint stiffness [Recovered/Resolved]
  - Arthralgia [Recovering/Resolving]
  - Paraesthesia [Recovered/Resolved]
  - Joint instability [Recovered/Resolved]
  - Tendonitis [Recovered/Resolved]
  - B-lymphocyte count decreased [Not Recovered/Not Resolved]
  - Nausea [Recovered/Resolved]
  - Injection site pain [Recovered/Resolved]
  - Depressed mood [Recovered/Resolved]
  - Headache [Recovered/Resolved]
  - Presyncope [Recovered/Resolved]
  - Weight increased [Not Recovered/Not Resolved]
  - Infection [Not Recovered/Not Resolved]
  - Urinary tract infection [Recovering/Resolving]
  - Hypoaesthesia [Recovered/Resolved]
  - COVID-19 [Unknown]
  - COVID-19 [Unknown]
  - Nasal congestion [Recovered/Resolved]

NARRATIVE: CASE EVENT DATE: 20180901
